FAERS Safety Report 25687761 (Version 1)
Quarter: 2025Q3

REPORT INFORMATION
  Report Type: Spontaneous
  Country: IN (occurrence: IN)
  Receive Date: 20250817
  Receipt Date: 20250817
  Transmission Date: 20251021
  Serious: Yes (Other)
  Sender: IPSEN BIOPHARMACEUTICALS, INC.
  Company Number: IN-SERVIER-S25011846

PATIENT
  Sex: Female

DRUGS (1)
  1. ONIVYDE [Suspect]
     Active Substance: IRINOTECAN HYDROCHLORIDE
     Indication: Product used for unknown indication
     Route: 065

REACTIONS (4)
  - Anaemia [Recovering/Resolving]
  - Platelet count decreased [Recovering/Resolving]
  - Haemoglobin decreased [Recovering/Resolving]
  - Full blood count decreased [Recovering/Resolving]
